FAERS Safety Report 4338179-2 (Version None)
Quarter: 2004Q1

REPORT INFORMATION
  Report Type: 
  Country: None (occurrence: None)
  Receive Date: 20040329
  Receipt Date: 20040210
  Transmission Date: 20041129
  Serious: No
  Sender: FDA-Public Use
  Company Number: USA040258991

PATIENT
  Age: 41 Year
  Sex: Male
  Weight: 84 kg

DRUGS (3)
  1. STRATTERA [Suspect]
     Indication: ATTENTION DEFICIT/HYPERACTIVITY DISORDER
     Dosage: 80 MG/DAY
     Dates: start: 20040209
  2. INSULIN [Concomitant]
  3. ZOLOFT [Concomitant]

REACTIONS (1)
  - BLOOD GLUCOSE DECREASED [None]
